FAERS Safety Report 24868542 (Version 1)
Quarter: 2025Q1

REPORT INFORMATION
  Report Type: Spontaneous
  Country: CN (occurrence: CN)
  Receive Date: 20250121
  Receipt Date: 20250121
  Transmission Date: 20250409
  Serious: Yes (Hospitalization)
  Sender: MYLAN
  Company Number: CN-MYLANLABS-2025M1003746

PATIENT
  Age: 77 Year
  Sex: Male
  Weight: 59.3 kg

DRUGS (1)
  1. CELEBREX [Suspect]
     Active Substance: CELECOXIB
     Indication: Intervertebral disc protrusion
     Dosage: 1 DOSAGE FORM, QD (ONCE DAILY)
     Route: 048
     Dates: start: 20241201, end: 20241203

REACTIONS (7)
  - Tenderness [Recovering/Resolving]
  - Skin burning sensation [Recovering/Resolving]
  - Hypoaesthesia [Recovering/Resolving]
  - Pain [Recovering/Resolving]
  - Epidermolysis bullosa [Recovering/Resolving]
  - Erythema [Recovering/Resolving]
  - Erythema multiforme [Recovering/Resolving]

NARRATIVE: CASE EVENT DATE: 20241201
